FAERS Safety Report 4523468-9 (Version None)
Quarter: 2004Q4

REPORT INFORMATION
  Report Type: 
  Country: None (occurrence: None)
  Receive Date: 20041209
  Receipt Date: 20041209
  Transmission Date: 20050328
  Serious: No
  Sender: FDA-Public Use
  Company Number: None

PATIENT
  Age: 55 Year
  Sex: Female
  Weight: 69.8539 kg

DRUGS (1)
  1. ZOLOFT [Suspect]
     Dosage: 25 MG THEN 50 MG 1X A DAY
     Dates: start: 20041004, end: 20041016

REACTIONS (5)
  - DRUG INEFFECTIVE [None]
  - EYE PAIN [None]
  - GLAUCOMA [None]
  - HEADACHE [None]
  - VISION BLURRED [None]
